FAERS Safety Report 4832602-2 (Version None)
Quarter: 2005Q4

REPORT INFORMATION
  Report Type: 
  Country: None (occurrence: None)
  Receive Date: 20051114
  Receipt Date: 20051026
  Transmission Date: 20060501
  Serious: Yes (Hospitalization)
  Sender: FDA-Public Use
  Company Number: 2005BI010708

PATIENT
  Age: 71 Year
  Sex: Female

DRUGS (3)
  1. AVONEX [Suspect]
     Indication: MULTIPLE SCLEROSIS
     Dosage: 30 UG QW IM
     Route: 030
     Dates: start: 20010101, end: 20030801
  2. AVONEX [Suspect]
     Indication: MULTIPLE SCLEROSIS
     Dosage: 30 UG QW IM; 15 UG QW IM
     Route: 030
     Dates: start: 20030801, end: 20050501
  3. AVONEX [Suspect]
     Indication: MULTIPLE SCLEROSIS
     Dosage: 30 UG QW IM; 15 UG QW IM
     Route: 030
     Dates: start: 20050501, end: 20050601

REACTIONS (5)
  - ASTHENIA [None]
  - BALANCE DISORDER [None]
  - PNEUMONIA [None]
  - PNEUMONITIS [None]
  - SHOULDER PAIN [None]
